FAERS Safety Report 8251550-1 (Version None)
Quarter: 2012Q1

REPORT INFORMATION
  Report Type: 
  Country: None (occurrence: None)
  Receive Date: 20120322
  Receipt Date: 20111214
  Transmission Date: 20120608
  Serious: Yes (Hospitalization)
  Sender: FDA-Public Use
  Company Number: UTC-013569

PATIENT
  Age: 76 Year
  Sex: Male
  Weight: 73.18 kg

DRUGS (5)
  1. DIURETICS (DIURETICS) [Concomitant]
  2. TYVASO [Suspect]
     Indication: PULMONARY ARTERIAL HYPERTENSION
     Dosage: 18-54 MICROGRAMS (4 IN 1 D),INHALATION
     Route: 055
     Dates: start: 20110221
  3. COUMADIN [Concomitant]
  4. TRACLEER [Concomitant]
  5. REVATIO [Concomitant]

REACTIONS (1)
  - EPISTAXIS [None]
